FAERS Safety Report 4917603-8 (Version None)
Quarter: 2006Q1

REPORT INFORMATION
  Report Type: 
  Country: None (occurrence: None)
  Receive Date: 20060221
  Receipt Date: 20050720
  Transmission Date: 20060701
  Serious: Yes (Hospitalization, Other)
  Sender: FDA-Public Use
  Company Number: US-MERCK-0507USA03171

PATIENT
  Age: 76 Year
  Sex: Female
  Weight: 102 kg

DRUGS (2)
  1. VIOXX [Suspect]
     Indication: ARTHRITIS
     Route: 048
     Dates: start: 20020516, end: 20040901
  2. ADVIL [Concomitant]
     Indication: PAIN
     Route: 065

REACTIONS (45)
  - ABDOMINAL DISTENSION [None]
  - ABDOMINAL PAIN [None]
  - ANXIETY [None]
  - ANXIETY DISORDER [None]
  - AORTIC VALVE INCOMPETENCE [None]
  - AORTIC VALVE STENOSIS [None]
  - APHASIA [None]
  - ARTERIOSCLEROSIS CORONARY ARTERY [None]
  - ATRIAL SEPTAL DEFECT [None]
  - BLOOD PRESSURE SYSTOLIC INCREASED [None]
  - CARDIAC FAILURE CONGESTIVE [None]
  - CEREBRAL ATROPHY [None]
  - CEREBRAL INFARCTION [None]
  - CEREBRAL ISCHAEMIA [None]
  - CEREBROVASCULAR ACCIDENT [None]
  - CERUMEN IMPACTION [None]
  - CHEST PAIN [None]
  - CONDITION AGGRAVATED [None]
  - CONFUSIONAL STATE [None]
  - CONVULSION [None]
  - CYSTITIS [None]
  - DECREASED APPETITE [None]
  - DEHYDRATION [None]
  - DEMENTIA ALZHEIMER'S TYPE [None]
  - DEPRESSED LEVEL OF CONSCIOUSNESS [None]
  - DEPRESSION [None]
  - DRUG HYPERSENSITIVITY [None]
  - DYSARTHRIA [None]
  - DYSPNOEA [None]
  - ENCEPHALOPATHY [None]
  - FALL [None]
  - ILEUS [None]
  - MITRAL VALVE INCOMPETENCE [None]
  - NAUSEA [None]
  - NERVOUS SYSTEM DISORDER [None]
  - OESOPHAGEAL ACHALASIA [None]
  - OESOPHAGEAL DISORDER [None]
  - PANIC DISORDER [None]
  - SINUSITIS [None]
  - TACHYCARDIA [None]
  - TREMOR [None]
  - URINARY TRACT INFECTION [None]
  - URINE OUTPUT DECREASED [None]
  - VERTIGO [None]
  - VOMITING [None]
